FAERS Safety Report 24195405 (Version 1)
Quarter: 2024Q3

REPORT INFORMATION
  Report Type: Spontaneous
  Country: US (occurrence: None)
  Receive Date: 20240809
  Receipt Date: 20240809
  Transmission Date: 20241016
  Serious: Yes (Hospitalization)
  Sender: Public
  Company Number: None

PATIENT
  Age: 84 Year
  Sex: Male
  Weight: 90.2 kg

DRUGS (1)
  1. DUPIXENT [Suspect]
     Active Substance: DUPILUMAB
     Indication: Asthma
     Dosage: OTHER FREQUENCY : 2MLEVERY14DAYS;?
     Route: 058

REACTIONS (3)
  - Lung operation [None]
  - Cyst drainage [None]
  - Aspiration pleural cavity [None]

NARRATIVE: CASE EVENT DATE: 20240725
